FAERS Safety Report 11622543 (Version 1)
Quarter: 2015Q4

REPORT INFORMATION
  Report Type: Spontaneous
  Country: US (occurrence: US)
  Receive Date: 20151013
  Receipt Date: 20151013
  Transmission Date: 20160304
  Serious: No
  Sender: FDA-Public Use
  Company Number: US-JNJFOC-20150201282

PATIENT
  Age: 78 Year
  Sex: Male
  Weight: 108.86 kg

DRUGS (2)
  1. WARFARIN [Concomitant]
     Active Substance: WARFARIN
     Indication: PRODUCT USED FOR UNKNOWN INDICATION
     Route: 065
  2. TYLENOL EXTRA STRENGTH [Suspect]
     Active Substance: ACETAMINOPHEN
     Indication: ARTHRALGIA
     Dosage: 2 CAPLETS, 1-2X PER DAY, 5-7 YEARS
     Route: 048
     Dates: end: 20150128

REACTIONS (3)
  - Product size issue [Unknown]
  - Product difficult to swallow [Recovered/Resolved]
  - Expired product administered [Unknown]

NARRATIVE: CASE EVENT DATE: 20150128
